FAERS Safety Report 25329854 (Version 1)
Quarter: 2025Q2

REPORT INFORMATION
  Report Type: Spontaneous
  Country: FR (occurrence: FR)
  Receive Date: 20250519
  Receipt Date: 20250519
  Transmission Date: 20250717
  Serious: Yes (Death, Life-Threatening, Other)
  Sender: AUROBINDO
  Company Number: FR-AFSSAPS-PB2025000538

PATIENT
  Age: 64 Year
  Sex: Male
  Weight: 85 kg

DRUGS (1)
  1. SILDENAFIL [Suspect]
     Active Substance: SILDENAFIL
     Indication: Product used for unknown indication
     Route: 048
     Dates: start: 20250424

REACTIONS (3)
  - Cardio-respiratory arrest [Fatal]
  - Brain oedema [Fatal]
  - Coma [Not Recovered/Not Resolved]

NARRATIVE: CASE EVENT DATE: 20250424
